FAERS Safety Report 4779448-1 (Version None)
Quarter: 2005Q3

REPORT INFORMATION
  Report Type: 
  Country: None (occurrence: None)
  Receive Date: 20050923
  Receipt Date: 20050916
  Transmission Date: 20060218
  Serious: Yes (Hospitalization, Other)
  Sender: FDA-Public Use
  Company Number: KII-2005-0018654

PATIENT
  Age: 43 Year
  Sex: Male

DRUGS (2)
  1. OXYCODONE HCL [Suspect]
     Indication: PAIN
     Dosage: INTRAVENOUS
     Route: 042
  2. ISOPROPANOL (ISOPROPANOL) [Suspect]
     Indication: INTENTIONAL MISUSE
     Dosage: SEE TEXT

REACTIONS (14)
  - BLOOD GLUCOSE INCREASED [None]
  - BLOOD PH INCREASED [None]
  - BODY TEMPERATURE INCREASED [None]
  - COMA [None]
  - DRUG ABUSER [None]
  - DRUG SCREEN POSITIVE [None]
  - MEMORY IMPAIRMENT [None]
  - MIOSIS [None]
  - OSMOLAR GAP ABNORMAL [None]
  - PCO2 DECREASED [None]
  - PNEUMOTHORAX [None]
  - SHOULDER PAIN [None]
  - SOMNOLENCE [None]
  - TACHYPNOEA [None]
